FAERS Safety Report 5807215-6 (Version None)
Quarter: 2008Q3

REPORT INFORMATION
  Report Type: 
  Country: None (occurrence: None)
  Receive Date: 20080711
  Receipt Date: 20080704
  Transmission Date: 20090109
  Serious: Yes (Hospitalization)
  Sender: FDA-Public Use
  Company Number: B0528114A

PATIENT
  Age: 42 Year
  Sex: Male

DRUGS (6)
  1. LAMICTAL [Suspect]
     Indication: EPILEPSY
     Route: 048
  2. ZYPREXA [Suspect]
     Dosage: 10MG PER DAY
     Route: 048
  3. EPITOMAX [Suspect]
     Dosage: 50MG PER DAY
     Route: 048
  4. TERCIAN [Suspect]
     Dosage: 75MG PER DAY
     Route: 048
     Dates: end: 20080201
  5. NOCTRAN [Suspect]
     Dosage: 10MG PER DAY
     Route: 048
     Dates: end: 20080201
  6. RIVOTRIL [Suspect]
     Dosage: 2MG TWICE PER DAY
     Route: 048
     Dates: end: 20080201

REACTIONS (16)
  - ATELECTASIS [None]
  - CARDIAC ASTHMA [None]
  - CHILLS [None]
  - COLLAPSE OF LUNG [None]
  - DYSPNOEA [None]
  - HYPOXIA [None]
  - INFLAMMATION [None]
  - MYALGIA [None]
  - OEDEMA PERIPHERAL [None]
  - PNEUMOTHORAX [None]
  - PULMONARY EMBOLISM [None]
  - PYREXIA [None]
  - RALES [None]
  - RESPIRATORY ACIDOSIS [None]
  - RESPIRATORY DISTRESS [None]
  - SOMNOLENCE [None]
